FAERS Safety Report 8406395-6 (Version None)
Quarter: 2012Q2

REPORT INFORMATION
  Report Type: 
  Country: None (occurrence: None)
  Receive Date: 20120604
  Receipt Date: 20120524
  Transmission Date: 20120825
  Serious: Yes (Other)
  Sender: FDA-Public Use
  Company Number: US-BRISTOL-MYERS SQUIBB COMPANY-16625089

PATIENT
  Sex: Female

DRUGS (1)
  1. ERBITUX [Suspect]
     Indication: SMALL INTESTINE CARCINOMA

REACTIONS (1)
  - BILE DUCT OBSTRUCTION [None]
